FAERS Safety Report 9433436 (Version 1)
Quarter: 2013Q3

REPORT INFORMATION
  Report Type: Spontaneous
  Country: BR (occurrence: BR)
  Receive Date: 20130731
  Receipt Date: 20130731
  Transmission Date: 20140515
  Serious: Yes (Other)
  Sender: FDA-Public Use
  Company Number: BR-PFIZER INC-2013201426

PATIENT
  Sex: Male

DRUGS (1)
  1. TECTA [Suspect]
     Indication: OESOPHAGITIS
     Dosage: 1 TABLET DAILY
     Route: 048
     Dates: start: 20130523

REACTIONS (4)
  - Pancreatic disorder [Unknown]
  - Abdominal pain [Not Recovered/Not Resolved]
  - Nausea [Not Recovered/Not Resolved]
  - Weight decreased [Not Recovered/Not Resolved]
